FAERS Safety Report 12691498 (Version 1)
Quarter: 2016Q3

REPORT INFORMATION
  Report Type: Report from Study
  Country: US (occurrence: US)
  Receive Date: 20160826
  Receipt Date: 20160826
  Transmission Date: 20161109
  Serious: Yes (Other)
  Sender: FDA-Public Use
  Company Number: US-ACTELION-A-NJ2015-124580

PATIENT
  Age: 70 Year
  Sex: Female

DRUGS (5)
  1. TRACLEER [Suspect]
     Active Substance: BOSENTAN
     Indication: PULMONARY ARTERIAL HYPERTENSION
     Dosage: 125 MG, UNK
     Route: 048
     Dates: start: 20100423
  2. ELIQUIS [Concomitant]
     Active Substance: APIXABAN
  3. VIAGRA [Concomitant]
     Active Substance: SILDENAFIL CITRATE
  4. DIOVAN [Concomitant]
     Active Substance: VALSARTAN
  5. SILDENAFIL. [Concomitant]
     Active Substance: SILDENAFIL

REACTIONS (3)
  - Hypotension [Unknown]
  - Dizziness [Unknown]
  - Blood pressure increased [Unknown]
